FAERS Safety Report 4685889-3 (Version None)
Quarter: 2005Q2

REPORT INFORMATION
  Report Type: 
  Country: None (occurrence: None)
  Receive Date: 20050609
  Receipt Date: 20050602
  Transmission Date: 20051028
  Serious: Yes (Other)
  Sender: FDA-Public Use
  Company Number: PHEH2005US05770

PATIENT
  Age: 84 Year
  Sex: Female

DRUGS (5)
  1. AREDIA [Suspect]
     Indication: BREAST CANCER
     Dosage: 90 MG, QMO
     Dates: start: 20010706, end: 20041109
  2. ZANTAC [Concomitant]
  3. LISINOPRIL [Concomitant]
  4. HYDROCHLOROTHIAZIDE [Concomitant]
  5. MAGNESIUM [Suspect]
     Dates: end: 20050412

REACTIONS (10)
  - ASEPTIC NECROSIS BONE [None]
  - BREAST MASS [None]
  - DERMATITIS EXFOLIATIVE [None]
  - DIARRHOEA [None]
  - HYPOCALCAEMIA [None]
  - JAW DISORDER [None]
  - LYMPHADENOPATHY [None]
  - OEDEMA PERIPHERAL [None]
  - OSTEONECROSIS [None]
  - STASIS DERMATITIS [None]
